FAERS Safety Report 5382836-6 (Version None)
Quarter: 2007Q3

REPORT INFORMATION
  Report Type: 
  Country: None (occurrence: None)
  Receive Date: 20070710
  Receipt Date: 20070702
  Transmission Date: 20080115
  Serious: Yes (Other)
  Sender: FDA-Public Use
  Company Number: US-AMGEN-STX232129

PATIENT
  Sex: Male

DRUGS (3)
  1. ENBREL [Suspect]
     Indication: RHEUMATOID ARTHRITIS
     Route: 058
     Dates: start: 20070625
  2. PLAQUENIL [Concomitant]
     Route: 048
  3. ARAVA [Concomitant]
     Route: 048

REACTIONS (1)
  - RETINOPATHY HAEMORRHAGIC [None]
